FAERS Safety Report 8453091-5 (Version None)
Quarter: 2012Q2

REPORT INFORMATION
  Report Type: 
  Country: None (occurrence: None)
  Receive Date: 20120620
  Receipt Date: 20120613
  Transmission Date: 20120825
  Serious: Yes (Hospitalization)
  Sender: FDA-Public Use
  Company Number: HR-GENZYME-CAMP-1002197

PATIENT
  Sex: Female
  Weight: 52.7 kg

DRUGS (14)
  1. ALEMTUZUMAB [Suspect]
     Indication: MULTIPLE SCLEROSIS
     Dosage: 12 MG, QD
     Route: 042
     Dates: start: 20100217, end: 20100221
  2. ALEMTUZUMAB [Suspect]
     Dosage: 12 MG, QD
     Route: 042
     Dates: start: 20110307, end: 20110309
  3. METHYLPREDNISOLONE [Concomitant]
     Indication: PRODUCT USED FOR UNKNOWN INDICATION
     Dosage: 1 G, QD
     Dates: start: 20120217, end: 20120219
  4. METHYLPREDNISOLONE [Concomitant]
     Indication: ADVERSE EVENT
     Dosage: 1000 MG, QD
     Route: 042
     Dates: start: 20110826, end: 20110830
  5. ESCITALOPRAM [Concomitant]
     Indication: ADVERSE EVENT
     Dosage: 5 MG, QD
     Route: 048
     Dates: start: 20100219
  6. ACYCLOVIR [Concomitant]
     Indication: PROPHYLAXIS
     Dosage: 200 MG, BID
     Route: 048
     Dates: start: 20110307, end: 20110406
  7. ACYCLOVIR [Concomitant]
     Dosage: 200 MG, QD
     Route: 048
     Dates: start: 20100217, end: 20100320
  8. LUPOCET [Concomitant]
     Indication: ADVERSE EVENT
     Dosage: 500 MG, BID
     Route: 048
     Dates: start: 20100220, end: 20100220
  9. METHYLPREDNISOLONE [Concomitant]
     Dosage: 1 G, QD
     Dates: start: 20110307, end: 20110309
  10. SYNOPEN [Concomitant]
     Dosage: 20 MG, QD
     Route: 030
     Dates: start: 20100217, end: 20100221
  11. REBIF [Concomitant]
     Indication: MULTIPLE SCLEROSIS
     Dosage: 44 MCG, UNK
     Dates: start: 20030505, end: 20060503
  12. METHYLPREDNISOLONE [Concomitant]
     Dosage: 1000 MG, QD
     Route: 042
     Dates: start: 20100810, end: 20100812
  13. SYNOPEN [Concomitant]
     Indication: PROPHYLAXIS
     Dosage: 20 MG, PRN
     Route: 030
     Dates: start: 20110307, end: 20110309
  14. PANTOPRAZOLE [Concomitant]
     Indication: ADVERSE EVENT
     Dosage: 40 MG, QD
     Route: 048
     Dates: start: 20100810, end: 20100812

REACTIONS (1)
  - NEPHROTIC SYNDROME [None]
